FAERS Safety Report 6702280-6 (Version None)
Quarter: 2010Q2

REPORT INFORMATION
  Report Type: 
  Country: None (occurrence: None)
  Receive Date: 20100429
  Receipt Date: 20100416
  Transmission Date: 20101027
  Serious: Yes (Hospitalization, Other)
  Sender: FDA-Public Use
  Company Number: PHEH2005US04218

PATIENT
  Sex: Female
  Weight: 54.421 kg

DRUGS (36)
  1. AREDIA [Suspect]
     Indication: MULTIPLE MYELOMA
     Dosage: 30 MG, UNK
     Route: 042
     Dates: start: 20011101, end: 20030701
  2. AREDIA [Suspect]
     Indication: MASTOCYTOSIS
     Dosage: 90 MG, QMO
     Route: 042
     Dates: start: 20011116, end: 20030401
  3. AREDIA [Suspect]
     Dosage: 90 MG, QMO
     Route: 042
     Dates: start: 20030601, end: 20040501
  4. ZOMETA [Suspect]
     Dosage: UNK
     Dates: end: 20051101
  5. PREMARIN [Concomitant]
  6. ZYRTEC [Concomitant]
  7. BENADRYL ^PFIZER WARNER-LAMBERT^ [Concomitant]
     Dates: start: 19910101
  8. RANITIDINE [Concomitant]
     Dosage: 150 MG, UNK
  9. ADVAIR DISKUS 100/50 [Concomitant]
  10. PERCOCET [Concomitant]
  11. REMERON [Concomitant]
  12. CHEMOTHERAPEUTICS NOS [Concomitant]
  13. GLEEVEC [Concomitant]
     Dosage: 500 MG, QD
     Route: 048
     Dates: start: 20040519
  14. SINGULAIR [Concomitant]
     Dosage: 10 MG, QD
  15. DIPROLENE [Concomitant]
     Dosage: UNK, PRN
     Route: 061
  16. ZANTAC [Concomitant]
     Dosage: UNK
  17. METHIMAZOLE [Concomitant]
  18. VANCOMYCIN [Concomitant]
  19. EVISTA [Concomitant]
  20. PREDNISONE [Concomitant]
  21. OXYCONTIN [Concomitant]
  22. OXYCODONE [Concomitant]
  23. TAPAZOLE [Concomitant]
  24. MORPHINE [Concomitant]
  25. VALIUM [Concomitant]
  26. CIPRO [Concomitant]
  27. COUMADIN [Concomitant]
     Dosage: UNK
  28. PENICILLIN ^GRUNENTHAL^ [Concomitant]
     Dosage: UNK
  29. ALBUTEROL [Concomitant]
     Dosage: UNK
  30. CLOTRIMAZOLE [Concomitant]
  31. METOPROLOL [Concomitant]
     Dosage: UNK
  32. PROAIR (FLUTICASONE PROPIONATE) [Concomitant]
     Dosage: UNK
  33. MYCELEX [Concomitant]
     Dosage: UNK
  34. AUGMENTIN '125' [Concomitant]
     Dosage: UNK
  35. DIPROLENE [Concomitant]
     Dosage: UNK
  36. BRONCHODILATORS [Concomitant]
     Dosage: UNK

REACTIONS (54)
  - ASTROCYTOMA [None]
  - BASEDOW'S DISEASE [None]
  - BIOPSY [None]
  - BONE DEBRIDEMENT [None]
  - BONE DISORDER [None]
  - BONE SCAN ABNORMAL [None]
  - BRONCHITIS [None]
  - CANDIDIASIS [None]
  - COMPUTERISED TOMOGRAM ABNORMAL [None]
  - CONDITION AGGRAVATED [None]
  - DENTURE WEARER [None]
  - DIPLOPIA [None]
  - DISORDER OF ORBIT [None]
  - EXOPHTHALMOS [None]
  - FISTULA [None]
  - FISTULA REPAIR [None]
  - GINGIVAL EROSION [None]
  - GINGIVAL SWELLING [None]
  - HYPERGLYCAEMIA [None]
  - INFECTION [None]
  - JAW DISORDER [None]
  - JAW FRACTURE [None]
  - JAW OPERATION [None]
  - LYMPHOMA [None]
  - MASS [None]
  - MASTOCYTOSIS [None]
  - METASTASIS [None]
  - MOUTH ULCERATION [None]
  - NASAL SEPTUM DEVIATION [None]
  - ORAL DISORDER [None]
  - ORAL PAIN [None]
  - ORAL PRURITUS [None]
  - ORAL SURGERY [None]
  - OSTEOARTHRITIS [None]
  - OSTEOMYELITIS [None]
  - OSTEONECROSIS [None]
  - OSTEOPENIA [None]
  - OSTEOPOROSIS [None]
  - PALATAL DISORDER [None]
  - PALATAL OEDEMA [None]
  - PERIODONTAL DISEASE [None]
  - POLYPECTOMY [None]
  - PRURITUS [None]
  - SCOLIOSIS [None]
  - SINUS ANTROSTOMY [None]
  - SINUSITIS [None]
  - SKIN LESION [None]
  - SWELLING [None]
  - SWOLLEN TONGUE [None]
  - TOOTH DISORDER [None]
  - TOOTH EXTRACTION [None]
  - ULCER [None]
  - WEIGHT DECREASED [None]
  - WHITE BLOOD CELL COUNT INCREASED [None]
